FAERS Safety Report 5873641-2 (Version None)
Quarter: 2008Q3

REPORT INFORMATION
  Report Type: 
  Country: None (occurrence: None)
  Receive Date: 20080908
  Receipt Date: 20080829
  Transmission Date: 20090109
  Serious: Yes (Other)
  Sender: FDA-Public Use
  Company Number: A0745202A

PATIENT
  Age: 37 Year
  Sex: Male

DRUGS (9)
  1. LAMOTRIGINE [Suspect]
     Dosage: 150MG TWICE PER DAY
     Route: 048
     Dates: start: 20080801
  2. KEPPRA [Concomitant]
  3. ZEBUTAL [Concomitant]
  4. MECLIZINE [Concomitant]
  5. LISINOPRIL [Concomitant]
  6. CLONAZEPAM [Concomitant]
  7. IBUPROFEN [Concomitant]
  8. LORTAB [Concomitant]
  9. HYDROCHLOROTHIAZIDE [Concomitant]

REACTIONS (4)
  - CONVULSION [None]
  - DIZZINESS [None]
  - FALL [None]
  - RIB FRACTURE [None]
